FAERS Safety Report 6422901-5 (Version None)
Quarter: 2009Q4

REPORT INFORMATION
  Report Type: 
  Country: None (occurrence: None)
  Receive Date: 20091102
  Receipt Date: 20091029
  Transmission Date: 20100525
  Serious: Yes (Hospitalization)
  Sender: FDA-Public Use
  Company Number: FR-SP-2009-03796

PATIENT
  Age: 68 Year
  Sex: Male

DRUGS (8)
  1. IMMUCYST [Suspect]
     Indication: BLADDER CANCER STAGE 0, WITH CANCER IN SITU
     Dosage: 1 INSTILLATION EVERY 2-3 WEEKS
     Route: 043
     Dates: start: 20090201, end: 20090618
  2. GLUCOPHAGE [Suspect]
     Indication: TYPE 2 DIABETES MELLITUS
     Route: 048
  3. GLIBENCLAMIDE [Suspect]
     Indication: TYPE 2 DIABETES MELLITUS
     Route: 048
  4. AVANDIA [Suspect]
     Indication: TYPE 2 DIABETES MELLITUS
     Route: 048
  5. JANUVIA [Suspect]
     Indication: TYPE 2 DIABETES MELLITUS
     Route: 048
  6. COVERSYL (PERINDOPRIL) [Suspect]
     Indication: HYPERTENSION
     Route: 048
  7. EZETROL (EZETIMIBE) [Suspect]
     Indication: DYSLIPIDAEMIA
     Route: 048
  8. BISOPROLOL FUMARATE [Suspect]
     Indication: HYPERTENSION
     Route: 048

REACTIONS (1)
  - GRANULOMATOUS LIVER DISEASE [None]
